FAERS Safety Report 9176837 (Version 20)
Quarter: 2018Q1

REPORT INFORMATION
  Report Type: Report from Study
  Country: CA (occurrence: CA)
  Receive Date: 20130321
  Receipt Date: 20180306
  Transmission Date: 20180509
  Serious: Yes (Hospitalization, Other)
  Sender: FDA-Public Use
  Company Number: PHHY2011CA110968

PATIENT
  Age: 71 Year
  Sex: Male

DRUGS (22)
  1. SANDOSTATIN [Suspect]
     Active Substance: OCTREOTIDE ACETATE
     Indication: CARCINOID TUMOUR
     Dosage: ONCE/SINGLE
     Route: 058
     Dates: start: 20091022, end: 20091022
  2. SANDOSTATIN LAR DEPOT [Suspect]
     Active Substance: OCTREOTIDE ACETATE
     Dosage: 30 MG, QMO (ONCE A MONTH)
     Route: 030
     Dates: start: 20141210
  3. SANDOSTATIN LAR DEPOT [Suspect]
     Active Substance: OCTREOTIDE ACETATE
     Dosage: 30 MG, QMO (EVERY 4 WEEKS)
     Route: 030
     Dates: start: 20150210
  4. SYNTHROID [Concomitant]
     Active Substance: LEVOTHYROXINE SODIUM
     Indication: THYROID DISORDER
     Dosage: 1 DF, QD, (MORNING ON EMPTY STOMACH, WAIT TO EAT HALF TO ONE HOUR)
     Route: 065
  5. APO-METOPROLOL [Concomitant]
     Active Substance: METOPROLOL
     Indication: CARDIAC FIBRILLATION
     Dosage: 0.5 DF, BID
     Route: 065
  6. SANDOSTATIN LAR DEPOT [Suspect]
     Active Substance: OCTREOTIDE ACETATE
     Dosage: 60 MG, QMO (ONCE A MONTH)
     Route: 030
  7. ACTONEL [Concomitant]
     Active Substance: RISEDRONATE SODIUM
     Indication: HIP DEFORMITY
     Dosage: 1 DF, QW, WITH FOOD SUNDAY BREAKFAST
     Route: 065
  8. FRAGMIN [Concomitant]
     Active Substance: DALTEPARIN SODIUM
     Indication: COAGULOPATHY
     Dosage: 15000 IU/0.6 ML, QD
     Route: 065
  9. APO-AMIODARONE [Concomitant]
     Active Substance: AMIODARONE
     Indication: CARDIAC FIBRILLATION
     Dosage: 0.5 DF, QD
     Route: 065
  10. GRANISETRON [Concomitant]
     Active Substance: GRANISETRON
     Indication: NAUSEA
     Dosage: 2 DF, QD ON DAYS 10 TO 14 (3 DAYS) TAKEN IN LATE EVENING WITH TEMODAL
     Route: 048
  11. VITAMIN D3 [Concomitant]
     Active Substance: CHOLECALCIFEROL
     Indication: INTERVERTEBRAL DISC DEGENERATION
     Dosage: 1 DF, ONCE OR TWICE DAILY FOR LUNCH AND FOR DINNER
     Route: 065
  12. LEVOCARB [Concomitant]
     Active Substance: CARBIDOPA\LEVODOPA
     Indication: PARKINSON^S DISEASE
     Dosage: UNK
     Route: 065
  13. CALCIUM [Concomitant]
     Active Substance: CALCIUM
     Indication: OSTEOPOROSIS
     Dosage: 1 DF, TWICE DAILY (BID) WITH LUNCH AND DINNER
     Route: 065
  14. MIRAPEX [Concomitant]
     Active Substance: PRAMIPEXOLE DIHYDROCHLORIDE
     Indication: PARKINSON^S DISEASE
     Dosage: 2 DF, TID
     Route: 065
     Dates: end: 20150322
  15. VITAMIN D3 [Concomitant]
     Active Substance: CHOLECALCIFEROL
     Indication: SCOLIOSIS
  16. APO-LEVOCARB [Concomitant]
     Active Substance: CARBIDOPA\LEVODOPA
     Indication: PARKINSON^S DISEASE
     Dosage: 3 DF, EVERY 3 AND A HALF HOURS, 6 TIMES A DAY
     Route: 065
  17. APO ATORVASTATIN [Concomitant]
     Active Substance: ATORVASTATIN CALCIUM
     Indication: HYPERCHOLESTEROLAEMIA
     Dosage: 1 DF, QD EVERY TIME AT BEDTIME
     Route: 065
  18. SANDOSTATIN LAR DEPOT [Suspect]
     Active Substance: OCTREOTIDE ACETATE
     Indication: CARCINOID TUMOUR
     Dosage: 20 MG, QMO (ONCE A MONTH)
     Route: 030
     Dates: start: 20091027
  19. SANDOSTATIN LAR DEPOT [Suspect]
     Active Substance: OCTREOTIDE ACETATE
     Dosage: 30 MG, QMO (ONCE A MONTH)
     Route: 030
  20. SANDOSTATIN LAR DEPOT [Suspect]
     Active Substance: OCTREOTIDE ACETATE
     Dosage: 60 MG, QMO (ONCE A MONTH)
     Route: 030
  21. XELODA [Concomitant]
     Active Substance: CAPECITABINE
     Indication: PRODUCT USED FOR UNKNOWN INDICATION
     Dosage: 3 DF, BID, AFTER FOOD ON DAYS 1 TO 4, 3 AFTER BREAKFAST AND 3 AFTER DINNER
     Route: 048
  22. TEMODAL [Concomitant]
     Active Substance: TEMOZOLOMIDE
     Indication: PRODUCT USED FOR UNKNOWN INDICATION
     Dosage: 4 DF, QD, ON DAYS 10 TO 14 (6 DAYS) TAKEN IN LATE EVENING WITH AA GRANISETRON
     Route: 048

REACTIONS (15)
  - Muscle atrophy [Unknown]
  - Hallucination [Unknown]
  - Respiratory rate increased [Unknown]
  - Hand fracture [Unknown]
  - Tooth fracture [Unknown]
  - Back pain [Unknown]
  - Gait inability [Unknown]
  - Weight decreased [Unknown]
  - Blood pressure diastolic decreased [Unknown]
  - Asthenia [Unknown]
  - Blood pressure increased [Unknown]
  - Contusion [Unknown]
  - Injection site mass [Unknown]
  - Bradycardia [Unknown]
  - Body temperature decreased [Unknown]

NARRATIVE: CASE EVENT DATE: 2011
